FAERS Safety Report 7391526-X (Version None)
Quarter: 2011Q2

REPORT INFORMATION
  Report Type: 
  Country: None (occurrence: None)
  Receive Date: 20110404
  Receipt Date: 20110324
  Transmission Date: 20111010
  Serious: No
  Sender: FDA-Public Use
  Company Number: US-PFIZER INC-2010102213

PATIENT
  Sex: Female

DRUGS (1)
  1. CLINDAMYCIN HCL [Suspect]
     Indication: CARDIAC MURMUR
     Dosage: FOUR CAPSULE OF 150 MG, ONCE A DAY
     Route: 048

REACTIONS (4)
  - PRODUCT TASTE ABNORMAL [None]
  - DRUG HYPERSENSITIVITY [None]
  - PRODUCT MEASURED POTENCY ISSUE [None]
  - FUNGAL INFECTION [None]
